FAERS Safety Report 5224343-7 (Version None)
Quarter: 2007Q1

REPORT INFORMATION
  Report Type: 
  Country: None (occurrence: None)
  Receive Date: 20070130
  Receipt Date: 20070126
  Transmission Date: 20070707
  Serious: Yes (Death)
  Sender: FDA-Public Use
  Company Number: GB-BOEHRINGER INGELHEIM PHARMACEUTICALS, INC.-2007-UK-00321UK

PATIENT
  Age: 68 Year
  Sex: Male

DRUGS (11)
  1. APTIVUS [Suspect]
     Indication: HIV TEST POSITIVE
     Dosage: 500MG BD VIA HIS PEG
  2. RITONAVIR [Concomitant]
     Indication: HIV TEST POSITIVE
     Dosage: DRUG WAS ADMINISTED VIA HIS PEG
  3. FUZEON [Concomitant]
     Indication: HIV TEST POSITIVE
  4. EPIVIR [Concomitant]
     Indication: HIV TEST POSITIVE
     Dosage: DRUG WAS ADMINISTED VIA HIS PEG
  5. ITRACONAZOLE [Concomitant]
     Indication: HIV TEST POSITIVE
     Dosage: DRUG WAS ADMINISTED VIA HIS PEG
  6. COTRIM [Concomitant]
     Indication: HIV TEST POSITIVE
     Dosage: DRUG WAS ADMINISTED VIA HIS PEG
  7. STAVUDINE [Concomitant]
     Indication: HIV TEST POSITIVE
     Dosage: DRUG WAS ADMINISTED VIA HIS PEG
  8. DIFFLAM ORAL RINSE [Concomitant]
  9. COCAINE MOUTHWASHES [Concomitant]
     Route: 048
  10. ORAMORPH SR [Concomitant]
     Dosage: DRUG WAS ADMINISTED VIA HIS PEG
  11. CO-CODAMOL [Concomitant]
     Dosage: DRUG WAS ADMINISTED VIA HIS PEG

REACTIONS (2)
  - GASTRITIS HAEMORRHAGIC [None]
  - UPPER GASTROINTESTINAL HAEMORRHAGE [None]
